FAERS Safety Report 22778899 (Version 2)
Quarter: 2023Q4

REPORT INFORMATION
  Report Type: Spontaneous
  Country: ID (occurrence: ID)
  Receive Date: 20230802
  Receipt Date: 20231122
  Transmission Date: 20240110
  Serious: Yes (Life-Threatening, Hospitalization, Other)
  Sender: FDA-Public Use
  Company Number: ID-PFIZER INC-PV202300127074

PATIENT
  Age: 59 Year
  Sex: Female
  Weight: 93 kg

DRUGS (3)
  1. IBRANCE [Suspect]
     Active Substance: PALBOCICLIB
     Indication: Breast cancer female
     Dosage: 125 MG, 1X/DAY
     Route: 048
     Dates: start: 20230711, end: 20230718
  2. IBRANCE [Suspect]
     Active Substance: PALBOCICLIB
     Indication: Breast cancer
     Dosage: 125 MG, 1X/DAY
  3. LETROZOLE [Concomitant]
     Active Substance: LETROZOLE
     Indication: Breast cancer
     Dosage: UNK, 1X/DAY
     Route: 048
     Dates: start: 20230711

REACTIONS (11)
  - Pneumonia [Recovered/Resolved]
  - Pulmonary sepsis [Recovered/Resolved]
  - Chills [Recovered/Resolved]
  - Pulmonary sepsis [Recovering/Resolving]
  - Lip dry [Recovered/Resolved]
  - Thirst [Recovered/Resolved]
  - Blood test abnormal [Not Recovered/Not Resolved]
  - Haemoglobin decreased [Recovered/Resolved]
  - White blood cell disorder [Recovered/Resolved]
  - Platelet count decreased [Not Recovered/Not Resolved]
  - Haematocrit increased [Unknown]

NARRATIVE: CASE EVENT DATE: 20230711
